FAERS Safety Report 17082831 (Version 2)
Quarter: 2019Q4

REPORT INFORMATION
  Report Type: Spontaneous
  Country: DE (occurrence: DE)
  Receive Date: 20191127
  Receipt Date: 20191216
  Transmission Date: 20200122
  Serious: Yes (Hospitalization, Other)
  Sender: FDA-Public Use
  Company Number: NVSC2019DE045669

PATIENT
  Sex: Female

DRUGS (2)
  1. MEKINIST [Suspect]
     Active Substance: TRAMETINIB DIMETHYL SULFOXIDE
     Indication: OVARIAN CANCER
     Dosage: 2 MG, QD
     Route: 065
     Dates: start: 20191025, end: 20191115
  2. MEKINIST [Suspect]
     Active Substance: TRAMETINIB DIMETHYL SULFOXIDE
     Dosage: 1.5 UNK
     Route: 065
     Dates: start: 20191115, end: 20191118

REACTIONS (6)
  - Hyponatraemia [Not Recovered/Not Resolved]
  - Dyspnoea [Recovering/Resolving]
  - Pleural effusion [Unknown]
  - Oedema [Not Recovered/Not Resolved]
  - Product use in unapproved indication [Unknown]
  - Rash [Recovering/Resolving]

NARRATIVE: CASE EVENT DATE: 2019
